FAERS Safety Report 8343155-9 (Version None)
Quarter: 2012Q2

REPORT INFORMATION
  Report Type: 
  Country: None (occurrence: None)
  Receive Date: 20120508
  Receipt Date: 20120503
  Transmission Date: 20120825
  Serious: Yes (Other)
  Sender: FDA-Public Use
  Company Number: US-PFIZER INC-2012109590

PATIENT
  Sex: Male

DRUGS (1)
  1. SUTENT [Suspect]
     Indication: THYROID CANCER
     Dosage: UNK

REACTIONS (3)
  - BONE MARROW FAILURE [None]
  - THYROID CANCER [None]
  - DISEASE PROGRESSION [None]
